FAERS Safety Report 24430514 (Version 2)
Quarter: 2024Q4

REPORT INFORMATION
  Report Type: Spontaneous
  Country: US (occurrence: US)
  Receive Date: 20241013
  Receipt Date: 20241021
  Transmission Date: 20250115
  Serious: Yes (Life-Threatening, Hospitalization, Other)
  Sender: ADVANZ PHARMA
  Company Number: US-MLMSERVICE-20240923-PI203452-00271-1

PATIENT

DRUGS (3)
  1. HYDROXYCHLOROQUINE [Suspect]
     Active Substance: HYDROXYCHLOROQUINE
     Indication: Systemic lupus erythematosus
     Dosage: UNK
  2. PREDNISONE [Suspect]
     Active Substance: PREDNISONE
     Indication: Systemic lupus erythematosus
     Dosage: 5 MG (LOW DOSE)
  3. AZATHIOPRINE [Suspect]
     Active Substance: AZATHIOPRINE
     Indication: Systemic lupus erythematosus
     Dosage: UNK

REACTIONS (16)
  - Cardiac tamponade [Recovering/Resolving]
  - Respiratory distress [Recovering/Resolving]
  - Bacterial pericarditis [Recovering/Resolving]
  - Pneumonia streptococcal [Recovering/Resolving]
  - Purulent pericarditis [Recovering/Resolving]
  - Pleural effusion [Recovering/Resolving]
  - Hypertension [Recovering/Resolving]
  - Right ventricular diastolic collapse [Recovering/Resolving]
  - Dyspnoea [Recovering/Resolving]
  - Chest pain [Recovering/Resolving]
  - Hypoxia [Recovering/Resolving]
  - Rales [Recovering/Resolving]
  - Leukocytosis [Recovering/Resolving]
  - Lung infiltration [Recovering/Resolving]
  - Pericardial effusion [Recovering/Resolving]
  - Anaemia [Recovering/Resolving]
